FAERS Safety Report 9259237 (Version 2)
Quarter: 2013Q2

REPORT INFORMATION
  Report Type: Spontaneous
  Country: DE (occurrence: DE)
  Receive Date: 20130426
  Receipt Date: 20130627
  Transmission Date: 20140414
  Serious: Yes (Death)
  Sender: FDA-Public Use
  Company Number: DE-B.I. PHARMACEUTICALS,INC./RIDGEFIELD-2013-DE-01193DE

PATIENT
  Age: 91 Year
  Sex: Male
  Weight: 71.5 kg

DRUGS (5)
  1. PRADAXA [Suspect]
     Indication: ATRIAL FIBRILLATION
     Dosage: 300 MG
     Route: 048
     Dates: start: 20121213, end: 20121220
  2. PRADAXA [Suspect]
  3. SIMVASTATIN [Concomitant]
     Dosage: 20 MG
     Route: 048
  4. TOREM [Concomitant]
     Dosage: 40 MG
     Route: 048
  5. CAPTOPRIL [Concomitant]
     Dosage: 50 MG
     Route: 048

REACTIONS (2)
  - Mesenteric haemorrhage [Fatal]
  - Haemorrhagic infarction [Fatal]
